FAERS Safety Report 8222839-7 (Version None)
Quarter: 2012Q1

REPORT INFORMATION
  Report Type: 
  Country: None (occurrence: None)
  Receive Date: 20120320
  Receipt Date: 20120312
  Transmission Date: 20120608
  Serious: Yes (Hospitalization, Other)
  Sender: FDA-Public Use
  Company Number: US-ASTRAZENECA-2011SE41412

PATIENT
  Age: 44 Year
  Sex: Female

DRUGS (12)
  1. PEPCID [Concomitant]
  2. NEXIUM [Suspect]
     Indication: GASTROOESOPHAGEAL REFLUX DISEASE
     Route: 048
     Dates: start: 20010101, end: 20100101
  3. ACETAZOLAMIDE [Concomitant]
     Indication: MENIERE'S DISEASE
  4. WELCHOL [Concomitant]
     Indication: IRRITABLE BOWEL SYNDROME
  5. ZANTAC [Concomitant]
  6. LIBRAX [Concomitant]
     Indication: IRRITABLE BOWEL SYNDROME
  7. QUESTRAN [Concomitant]
  8. DEXILANT [Concomitant]
     Indication: GASTROOESOPHAGEAL REFLUX DISEASE
  9. IMODIUM [Concomitant]
  10. VALTREX [Concomitant]
     Indication: HERPES VIRUS INFECTION
  11. ZOLPIDEM [Concomitant]
     Indication: SLEEP DISORDER
  12. CALCIUM CARBONATE [Concomitant]

REACTIONS (9)
  - OSTEOPOROSIS [None]
  - OSTEOPENIA [None]
  - DEPRESSION [None]
  - PAIN [None]
  - SKIN CANCER [None]
  - VITAMIN D DEFICIENCY [None]
  - GALLBLADDER DISORDER [None]
  - EMOTIONAL DISTRESS [None]
  - CALCIUM DEFICIENCY [None]
